FAERS Safety Report 9322728 (Version 2)
Quarter: 2013Q3

REPORT INFORMATION
  Report Type: Report from Study
  Country: FR (occurrence: FR)
  Receive Date: 20130601
  Receipt Date: 20130710
  Transmission Date: 20140515
  Serious: Yes (Other)
  Sender: FDA-Public Use
  Company Number: FR-ROCHE-1228997

PATIENT
  Sex: 0

DRUGS (2)
  1. BEVACIZUMAB [Suspect]
     Indication: GLIOBLASTOMA
     Route: 065
  2. TEMOZOLOMIDE [Suspect]
     Indication: GLIOBLASTOMA
     Dosage: 130-150 MGS/M2/D FOR 5 DAYS
     Route: 065

REACTIONS (5)
  - Haematotoxicity [Unknown]
  - Cerebral haemorrhage [Unknown]
  - Intestinal perforation [Unknown]
  - Hypertension [Unknown]
  - Embolism [Unknown]
